FAERS Safety Report 8238941-X (Version None)
Quarter: 2012Q1

REPORT INFORMATION
  Report Type: 
  Country: None (occurrence: None)
  Receive Date: 20120327
  Receipt Date: 20120313
  Transmission Date: 20120608
  Serious: Yes (Hospitalization, Other)
  Sender: FDA-Public Use
  Company Number: US-ROCHE-1022862

PATIENT
  Sex: Female
  Weight: 53.572 kg

DRUGS (1)
  1. ACCUTANE [Suspect]
     Indication: ACNE CYSTIC
     Dates: start: 19980101, end: 19990101

REACTIONS (7)
  - DEPRESSION [None]
  - INTESTINAL HAEMORRHAGE [None]
  - DIVERTICULITIS [None]
  - INFECTIOUS PERITONITIS [None]
  - LARGE INTESTINE PERFORATION [None]
  - IRRITABLE BOWEL SYNDROME [None]
  - INFLAMMATORY BOWEL DISEASE [None]
